FAERS Safety Report 24595037 (Version 2)
Quarter: 2025Q4

REPORT INFORMATION
  Report Type: Report from Study
  Country: US (occurrence: US)
  Receive Date: 20241108
  Receipt Date: 20251028
  Transmission Date: 20260118
  Serious: Yes (Other)
  Sender: ABBVIE
  Company Number: US-ABBVIE-5989414

PATIENT
  Sex: Male

DRUGS (1)
  1. IMBRUVICA [Suspect]
     Active Substance: IBRUTINIB
     Indication: Product used for unknown indication
     Route: 048
     Dates: start: 2020

REACTIONS (10)
  - Bone marrow transplant [Unknown]
  - Hypertension [Unknown]
  - Acne [Unknown]
  - Pustule [Unknown]
  - Heart rate irregular [Unknown]
  - White blood cell count decreased [Unknown]
  - Contusion [Unknown]
  - Blood cholesterol increased [Unknown]
  - Chronic lymphocytic leukaemia [Unknown]
  - Skin mass [Unknown]
